FAERS Safety Report 7688528-2 (Version None)
Quarter: 2011Q3

REPORT INFORMATION
  Report Type: 
  Country: None (occurrence: None)
  Receive Date: 20110817
  Receipt Date: 20110817
  Transmission Date: 20111222
  Serious: Yes (Death, Life-Threatening, Hospitalization)
  Sender: FDA-Public Use
  Company Number: None

PATIENT
  Age: 65 Year
  Sex: Female

DRUGS (1)
  1. LEVAQUIN [Suspect]
     Indication: PNEUMONIA PRIMARY ATYPICAL
     Dates: start: 20110603, end: 20110604

REACTIONS (9)
  - BRAIN INJURY [None]
  - CARDIAC ARREST [None]
  - RENAL FAILURE [None]
  - DRUG HYPERSENSITIVITY [None]
  - COMA [None]
  - VOMITING [None]
  - DYSSTASIA [None]
  - MULTI-ORGAN FAILURE [None]
  - NAUSEA [None]
